FAERS Safety Report 9268520 (Version 1)
Quarter: 2013Q2

REPORT INFORMATION
  Report Type: Spontaneous
  Country: US (occurrence: US)
  Receive Date: 20130502
  Receipt Date: 20130502
  Transmission Date: 20140414
  Serious: No
  Sender: FDA-Public Use
  Company Number: US-ALEXION-A201300014

PATIENT
  Age: 9 Year
  Sex: Female
  Weight: 40 kg

DRUGS (2)
  1. SOLIRIS 300MG [Suspect]
     Indication: OFF LABEL USE
     Dosage: 900 MG, QW
     Route: 042
     Dates: start: 20130104
  2. SOLIRIS 300MG [Suspect]
     Indication: GLOMERULONEPHRITIS

REACTIONS (2)
  - Disorientation [Recovered/Resolved]
  - Pain in extremity [Recovered/Resolved]
